FAERS Safety Report 10753427 (Version 1)
Quarter: 2015Q1

REPORT INFORMATION
  Report Type: Spontaneous
  Country: JP (occurrence: JP)
  Receive Date: 20150131
  Receipt Date: 20150131
  Transmission Date: 20150721
  Serious: Yes (Other)
  Sender: FDA-Public Use
  Company Number: PHHY2015JP007420

PATIENT
  Age: 83 Year
  Sex: Female

DRUGS (4)
  1. ACARBOSE. [Suspect]
     Active Substance: ACARBOSE
     Indication: DIABETES MELLITUS
     Dosage: 300 MG, QD
     Route: 048
  2. PREDNISOLONE. [Suspect]
     Active Substance: PREDNISOLONE
     Indication: POLYMYALGIA RHEUMATICA
     Dosage: 10 MG, QD
     Route: 048
  3. PREDNISOLONE. [Suspect]
     Active Substance: PREDNISOLONE
     Dosage: 8 MG, QD
     Route: 048
  4. NOVORAPID [Concomitant]
     Active Substance: INSULIN ASPART
     Indication: DIABETES MELLITUS
     Dosage: 10 U, QD, TOTAL (8 U IN MORNING AND 2 U IN EVENING)
     Route: 065

REACTIONS (3)
  - Pneumatosis intestinalis [Recovering/Resolving]
  - Gastrointestinal oedema [Recovering/Resolving]
  - Abdominal distension [Recovering/Resolving]
